FAERS Safety Report 7241476-4 (Version None)
Quarter: 2011Q1

REPORT INFORMATION
  Report Type: 
  Country: None (occurrence: None)
  Receive Date: 20110124
  Receipt Date: 20110118
  Transmission Date: 20110831
  Serious: Yes (Death)
  Sender: FDA-Public Use
  Company Number: SA-PFIZER INC-2011003799

PATIENT
  Age: 53 Year
  Sex: Male
  Weight: 58 kg

DRUGS (8)
  1. IRINOTECAN HCL [Suspect]
     Indication: COLON CANCER METASTATIC
     Dosage: 150 MG, CYCLIC, ONCE BIWEEKLY
     Route: 042
  2. VALSARTAN [Concomitant]
     Indication: HYPERTENSION
  3. GLICLAZIDE [Concomitant]
     Indication: TYPE 2 DIABETES MELLITUS
  4. ATORVASTATIN [Concomitant]
     Indication: HYPERLIPIDAEMIA
  5. PANITUMUMAB [Interacting]
     Indication: COLON CANCER METASTATIC
     Dosage: 3.5 MG/KG, CYCLIC, ONCE BI-WEEKLY
     Route: 042
  6. IRINOTECAN HCL [Interacting]
     Dosage: 125 MG/M2, CYCLIC, ONCE BI-WEEKLY
     Route: 042
  7. SPIRONOLACTONE [Concomitant]
     Indication: MALIGNANT ASCITES
  8. PANITUMUMAB [Interacting]
     Dosage: 1.75 MG/KG, CYCLIC, ONCE BI-WEEKLY
     Route: 042

REACTIONS (2)
  - CARDIAC ARREST [None]
  - DRUG INTERACTION [None]
